FAERS Safety Report 10075909 (Version 2)
Quarter: 2014Q2

REPORT INFORMATION
  Report Type: Spontaneous
  Country: US (occurrence: US)
  Receive Date: 20140414
  Receipt Date: 20140430
  Transmission Date: 20141212
  Serious: Yes (Other)
  Sender: FDA-Public Use
  Company Number: US-SA-2014SA045807

PATIENT
  Age: 75 Year
  Sex: Female
  Weight: 72 kg

DRUGS (2)
  1. ALLEGRA D [Suspect]
     Indication: HYPERSENSITIVITY
     Dosage: PRODUCT STARTED 35 YEARS AGO. DOSE: 60/120 MG FREQUENCY: ONCE OR TWICE A DAY.
     Route: 048
     Dates: start: 198809
  2. ALLEGRA D [Suspect]
     Indication: HYPERSENSITIVITY
     Dosage: PRODUCT STARTED FROM 35 YEARS.
     Route: 048

REACTIONS (9)
  - Neoplasm malignant [Recovered/Resolved]
  - Apparent death [Unknown]
  - Dyspnoea [Unknown]
  - Head discomfort [Unknown]
  - Sneezing [Unknown]
  - Cough [Unknown]
  - Lacrimation increased [Unknown]
  - Extra dose administered [Unknown]
  - Drug ineffective [Unknown]
